FAERS Safety Report 16598896 (Version 2)
Quarter: 2019Q3

REPORT INFORMATION
  Report Type: Spontaneous
  Country: GB (occurrence: GB)
  Receive Date: 20190719
  Receipt Date: 20190815
  Transmission Date: 20191004
  Serious: Yes (Other)
  Sender: FDA-Public Use
  Company Number: GB-ASTRAZENECA-2019SF00223

PATIENT
  Sex: Male

DRUGS (10)
  1. SIMVASTATIN. [Suspect]
     Active Substance: SIMVASTATIN
     Indication: CARDIOVASCULAR DISORDER
     Route: 065
  2. OMEPRAZOLE. [Suspect]
     Active Substance: OMEPRAZOLE
     Indication: GASTROOESOPHAGEAL REFLUX DISEASE
     Dosage: 1 UNIT DAILY
     Route: 048
     Dates: start: 1992, end: 201802
  3. ROPINIROLE. [Suspect]
     Active Substance: ROPINIROLE
     Indication: PERIODIC LIMB MOVEMENT DISORDER
     Route: 065
  4. ADCAL (CARBAZOCHROME) [Suspect]
     Active Substance: CARBAZOCHROME
     Indication: OSTEOPOROSIS
     Dosage: 1 DF, UNK
     Route: 065
  5. CALCIUM FOLINATE [Suspect]
     Active Substance: LEUCOVORIN CALCIUM
     Indication: CARDIOVASCULAR DISORDER
     Route: 065
  6. RISEDRONATE SODIUM. [Suspect]
     Active Substance: RISEDRONATE SODIUM
     Indication: OSTEOPOROSIS
     Route: 065
  7. OMEPRAZOLE. [Suspect]
     Active Substance: OMEPRAZOLE
     Indication: GASTROOESOPHAGEAL REFLUX DISEASE
     Route: 048
     Dates: start: 201812
  8. ASPIRIN. [Suspect]
     Active Substance: ASPIRIN
     Indication: CARDIOVASCULAR DISORDER
     Route: 065
  9. HYDROXOCOBALAMIN [Suspect]
     Active Substance: HYDROXOCOBALAMIN
     Indication: PRODUCT USED FOR UNKNOWN INDICATION
     Dosage: UNK (STANDARD LOADING DOSE)
     Route: 030
     Dates: start: 201901
  10. HYDROXOCOBALAMIN [Suspect]
     Active Substance: HYDROXOCOBALAMIN
     Indication: PRODUCT USED FOR UNKNOWN INDICATION
     Dosage: UNK (TOP UP DOSE)
     Route: 030
     Dates: start: 201904

REACTIONS (14)
  - Treatment failure [Unknown]
  - Periodic limb movement disorder [Unknown]
  - Asthenia [Unknown]
  - Hand deformity [Unknown]
  - Somnolence [Unknown]
  - Vitamin B12 deficiency [Unknown]
  - Hypoaesthesia [Unknown]
  - Angina pectoris [Unknown]
  - Exercise tolerance decreased [Unknown]
  - Balance disorder [Unknown]
  - Fall [Unknown]
  - Sensory loss [Unknown]
  - Peripheral sensorimotor neuropathy [Unknown]
  - Cardiovascular disorder [Unknown]

NARRATIVE: CASE EVENT DATE: 1992
